FAERS Safety Report 18566512 (Version 14)
Quarter: 2025Q4

REPORT INFORMATION
  Report Type: Report from Study
  Country: US (occurrence: US)
  Receive Date: 20201201
  Receipt Date: 20251216
  Transmission Date: 20260118
  Serious: Yes (Hospitalization, Other)
  Sender: TAKEDA
  Company Number: US-TAKEDA-US201912569

PATIENT
  Age: 54 Year
  Sex: Female

DRUGS (4)
  1. HUMAN IMMUNOGLOBULIN G [Suspect]
     Active Substance: HUMAN IMMUNOGLOBULIN G
     Indication: Primary immunodeficiency syndrome
     Dosage: UNK
  2. HUMAN IMMUNOGLOBULIN G [Suspect]
     Active Substance: HUMAN IMMUNOGLOBULIN G
     Indication: Hypogammaglobulinaemia
  3. COVID-19 VACCINE NOS [Suspect]
     Active Substance: COVID-19 VACCINE
     Indication: COVID-19 immunisation
     Dosage: UNK
  4. PROLIA [Suspect]
     Active Substance: DENOSUMAB
     Indication: Product used for unknown indication
     Dosage: UNK

REACTIONS (18)
  - Clostridium difficile infection [Recovered/Resolved]
  - Gastroenteritis salmonella [Unknown]
  - Wrist fracture [Unknown]
  - Lower limb fracture [Unknown]
  - Walking aid user [Recovered/Resolved]
  - Fall [Unknown]
  - Gastrointestinal haemorrhage [Recovered/Resolved]
  - Femur fracture [Unknown]
  - Haemoglobin decreased [Recovered/Resolved]
  - Back disorder [Unknown]
  - Foot fracture [Unknown]
  - Pelvic pain [Unknown]
  - Tendon injury [Recovering/Resolving]
  - Injection related reaction [Unknown]
  - Fatigue [Unknown]
  - Insomnia [Unknown]
  - Malabsorption [Unknown]
  - Haemoglobin abnormal [Recovered/Resolved]

NARRATIVE: CASE EVENT DATE: 20230901
